FAERS Safety Report 19178269 (Version 1)
Quarter: 2021Q2

REPORT INFORMATION
  Report Type: Spontaneous
  Country: US (occurrence: US)
  Receive Date: 20210426
  Receipt Date: 20210426
  Transmission Date: 20210717
  Serious: No
  Sender: FDA-Public Use
  Company Number: US-DRREDDYS-USA/USA/21/0134696

PATIENT
  Age: 18 Year
  Sex: Male

DRUGS (2)
  1. ZENATANE [Suspect]
     Active Substance: ISOTRETINOIN
     Dosage: RMA ISSUE DATE:12/18/2020 12:00:00 AM, 1/15/2021 12:00:00 AM, 2/26/2021 12:00:00 AM
     Route: 048
  2. ZENATANE [Suspect]
     Active Substance: ISOTRETINOIN
     Indication: PRODUCT USED FOR UNKNOWN INDICATION
     Dosage: RMA ISSUE DATE: 12/18/2020 12:00:00 AM, 1/15/2021 12:00:00 AM, 2/26/2021 12:00:00 AM, 3/15/2021 12:0
     Route: 048

REACTIONS (2)
  - Decreased appetite [Unknown]
  - Weight decreased [Unknown]
